FAERS Safety Report 14564020 (Version 1)
Quarter: 2018Q1

REPORT INFORMATION
  Report Type: Spontaneous
  Country: GB (occurrence: GB)
  Receive Date: 20180222
  Receipt Date: 20180222
  Transmission Date: 20180509
  Serious: Yes (Hospitalization)
  Sender: FDA-Public Use
  Company Number: GB-SA-2018SA024980

PATIENT
  Age: 70 Year
  Sex: Male

DRUGS (2)
  1. LANTUS [Suspect]
     Active Substance: INSULIN GLARGINE
     Route: 051
     Dates: start: 201103
  2. CLIKSTAR [Suspect]
     Active Substance: CLIKSTAR
     Dates: start: 201103

REACTIONS (5)
  - Nasopharyngitis [Unknown]
  - Blood glucose increased [Unknown]
  - Cardiac disorder [Unknown]
  - Cough [Unknown]
  - Device use issue [Unknown]

NARRATIVE: CASE EVENT DATE: 2017
